FAERS Safety Report 8726440 (Version 3)
Quarter: 2012Q4

REPORT INFORMATION
  Report Type: Report from Study
  Country: JP (occurrence: JP)
  Receive Date: 20120816
  Receipt Date: 20121113
  Transmission Date: 20130627
  Serious: Yes (Other)
  Sender: FDA-Public Use
  Company Number: JP-B.I. PHARMACEUTICALS,INC./RIDGEFIELD-2012-BP-17977NB

PATIENT
  Age: 64 Year
  Sex: Male
  Weight: 70 kg

DRUGS (4)
  1. PRAZAXA [Suspect]
     Indication: THROMBOSIS PROPHYLAXIS
     Dosage: 300 mg
     Route: 048
     Dates: start: 20120420, end: 20120718
  2. PRAZAXA [Suspect]
     Dosage: 220 mg
     Route: 048
     Dates: start: 20120719
  3. GASPORT [Concomitant]
     Indication: PROPHYLAXIS
     Dosage: 20 mg
     Route: 048
     Dates: start: 20120418
  4. DIOVAN [Concomitant]
     Route: 065

REACTIONS (1)
  - Gallbladder cancer [Not Recovered/Not Resolved]
